FAERS Safety Report 7135386-0 (Version None)
Quarter: 2010Q4

REPORT INFORMATION
  Report Type: 
  Country: None (occurrence: None)
  Receive Date: 20101118
  Receipt Date: 20101112
  Transmission Date: 20110411
  Serious: Yes (Death)
  Sender: FDA-Public Use
  Company Number: DKLU1066444

PATIENT
  Age: 67 Year
  Sex: Female

DRUGS (4)
  1. SABRIL [Suspect]
     Indication: COMPLEX PARTIAL SEIZURES
     Dosage: 1500 MG MILLIGRAM(S), 2 IN 1 D, ORAL
     Route: 048
     Dates: start: 20101001, end: 20101016
  2. TOPIRAMATE [Concomitant]
  3. LEVETIRACETAM [Concomitant]
  4. BENZODIAZEPINE (BENZODIAZEPINE DERIVATIVES) [Concomitant]

REACTIONS (1)
  - DEATH [None]
